FAERS Safety Report 9064419 (Version 1)
Quarter: 2013Q1

REPORT INFORMATION
  Report Type: Spontaneous
  Country: BR (occurrence: BR)
  Receive Date: 20130128
  Receipt Date: 20130128
  Transmission Date: 20140127
  Serious: Yes (Other)
  Sender: FDA-Public Use
  Company Number: PHHY2013BR007219

PATIENT
  Sex: Female

DRUGS (4)
  1. DIOVAN [Suspect]
     Indication: HYPERTENSION
     Dosage: 160 MG, QD (MORNING)
     Dates: start: 2005
  2. COUMADINE [Suspect]
     Dosage: UNK UKN, UNK
     Dates: start: 2005
  3. ANCORON [Suspect]
     Dosage: UNK UKN, UNK
     Dates: start: 2005
  4. CONCOR [Suspect]
     Dosage: UNK UKN, UNK
     Dates: start: 2005

REACTIONS (12)
  - Cerebrovascular accident [Recovering/Resolving]
  - Memory impairment [Recovering/Resolving]
  - Atrial septal defect [Recovering/Resolving]
  - Atrial fibrillation [Recovering/Resolving]
  - Fall [Recovering/Resolving]
  - Ankle fracture [Recovering/Resolving]
  - Blood pressure increased [Recovering/Resolving]
  - Thyroid disorder [Recovering/Resolving]
  - Nervousness [Recovering/Resolving]
  - Sensory loss [Recovering/Resolving]
  - Vertigo [Recovering/Resolving]
  - Fatigue [Recovering/Resolving]
